FAERS Safety Report 6995933-6 (Version None)
Quarter: 2010Q3

REPORT INFORMATION
  Report Type: 
  Country: None (occurrence: None)
  Receive Date: 20100918
  Receipt Date: 20081208
  Transmission Date: 20110219
  Serious: No
  Sender: FDA-Public Use
  Company Number: US-WYE-H07136508

PATIENT
  Sex: Female
  Weight: 102.15 kg

DRUGS (7)
  1. EFFEXOR XR [Suspect]
     Indication: DEPRESSION
     Route: 048
     Dates: start: 20050101, end: 20080101
  2. EFFEXOR XR [Suspect]
     Dosage: ATTEMPTING TO TAPER EFFEXOR XR SLOWLY OVER THE PAST 12 MONTHS UNDER HER DOCTOR'S CARE
     Route: 048
     Dates: start: 20080101, end: 20080101
  3. EFFEXOR XR [Suspect]
     Route: 048
     Dates: start: 20080101, end: 20080101
  4. EFFEXOR XR [Suspect]
     Route: 048
     Dates: start: 20080101
  5. MOBIC [Concomitant]
  6. KLONOPIN [Concomitant]
  7. LIPITOR [Concomitant]

REACTIONS (7)
  - DIZZINESS [None]
  - DRUG INEFFECTIVE [None]
  - DRUG WITHDRAWAL SYNDROME [None]
  - HEADACHE [None]
  - MOTION SICKNESS [None]
  - NAUSEA [None]
  - WEIGHT INCREASED [None]
